FAERS Safety Report 10430181 (Version 1)
Quarter: 2014Q3

REPORT INFORMATION
  Report Type: Report from Study
  Country: KR (occurrence: KR)
  Receive Date: 20140904
  Receipt Date: 20140904
  Transmission Date: 20150326
  Serious: Yes (Other)
  Sender: FDA-Public Use
  Company Number: KR-CELGENEUS-286-C5013-14084913

PATIENT
  Age: 75 Year
  Sex: Male
  Weight: 60.4 kg

DRUGS (11)
  1. CC-5013 [Suspect]
     Active Substance: LENALIDOMIDE
     Indication: PLASMA CELL MYELOMA
     Dosage: 25 MILLIGRAM
     Route: 048
     Dates: start: 20101201, end: 20120506
  2. DEXAMETHASONE. [Suspect]
     Active Substance: DEXAMETHASONE
     Indication: PLASMA CELL MYELOMA
     Dosage: 40 MILLIGRAM
     Route: 048
     Dates: start: 20101201, end: 20120506
  3. PREDNISONE. [Suspect]
     Active Substance: PREDNISONE
     Indication: PLASMA CELL MYELOMA
     Dosage: 60 MICROGRAM
     Route: 048
     Dates: start: 20120801, end: 20131023
  4. CARFILZOMIB [Suspect]
     Active Substance: CARFILZOMIB
     Indication: PLASMA CELL MYELOMA
     Dosage: 34 MICROGRAM
     Route: 048
     Dates: start: 20131216, end: 20140710
  5. MIDAZOLAM [Concomitant]
     Active Substance: MIDAZOLAM\MIDAZOLAM HYDROCHLORIDE
     Indication: SEDATION
     Dosage: 4 MICROGRAM
     Route: 041
     Dates: start: 20140724, end: 20140724
  6. IR COLON [Concomitant]
     Indication: PAIN MANAGEMENT
     Dosage: 68 MICROGRAM
     Route: 048
  7. COOL POWER [Concomitant]
     Indication: PRODUCT USED FOR UNKNOWN INDICATION
     Dosage: 2 LITERS
     Route: 048
     Dates: start: 20140723, end: 20140723
  8. THALIDOMIDE [Suspect]
     Active Substance: THALIDOMIDE
     Indication: PLASMA CELL MYELOMA
     Dosage: 100 MICROGRAM
     Route: 048
     Dates: start: 20120926, end: 20130117
  9. DEXAMETHASONE. [Suspect]
     Active Substance: DEXAMETHASONE
     Dosage: 20 MILLIGRAM
     Route: 048
     Dates: start: 20131216, end: 20140710
  10. MELPHALAN [Suspect]
     Active Substance: MELPHALAN
     Indication: PLASMA CELL MYELOMA
     Route: 048
     Dates: start: 20120801, end: 20131023
  11. PENTIDINE [Concomitant]
     Indication: SEDATION
     Dosage: 25 MICROGRAM
     Route: 041
     Dates: start: 20140724, end: 20140724

REACTIONS (1)
  - Rectal cancer stage II [Not Recovered/Not Resolved]

NARRATIVE: CASE EVENT DATE: 20140729
